FAERS Safety Report 14670366 (Version 2)
Quarter: 2018Q2

REPORT INFORMATION
  Report Type: Spontaneous
  Country: US (occurrence: US)
  Receive Date: 20180322
  Receipt Date: 20180409
  Transmission Date: 20180711
  Serious: Yes (Other)
  Sender: FDA-Public Use
  Company Number: US-TEVA-2018-US-873071

PATIENT
  Age: 13 Year
  Sex: Female

DRUGS (3)
  1. RILONACEPT [Suspect]
     Active Substance: RILONACEPT
     Indication: IMMUNOSUPPRESSANT DRUG THERAPY
     Dosage: 110MG (2.2 MG/KG) PER WEEK
     Route: 058
  2. CICLOSPORIN [Suspect]
     Active Substance: CYCLOSPORINE
     Indication: IMMUNOSUPPRESSANT DRUG THERAPY
     Dosage: 175MG (3.5 MG/KG) TWICE DAILY
     Route: 048
  3. PREDNISONE. [Suspect]
     Active Substance: PREDNISONE
     Indication: IMMUNOSUPPRESSANT DRUG THERAPY
     Dosage: 30MG (0.6 MG/KG) PER DAY
     Route: 048

REACTIONS (1)
  - Hepatitis [Unknown]
